FAERS Safety Report 7227868-8 (Version None)
Quarter: 2011Q1

REPORT INFORMATION
  Report Type: 
  Country: None (occurrence: None)
  Receive Date: 20110114
  Receipt Date: 20110107
  Transmission Date: 20110831
  Serious: Yes (Death)
  Sender: FDA-Public Use
  Company Number: US-MERCK-1101USA00926

PATIENT
  Age: 59 Year
  Sex: Female

DRUGS (10)
  1. FENOFIBRATE [Suspect]
     Route: 065
  2. SERTRALINE HYDROCHLORIDE [Suspect]
     Route: 065
  3. AMLODIPINE [Suspect]
     Route: 065
  4. LEVOTHYROXINE SODIUM [Suspect]
     Route: 065
  5. ACETAMINOPHEN AND HYDROCODONE BITARTRATE [Suspect]
     Route: 065
  6. VYTORIN [Suspect]
     Route: 048
  7. CLONIDINE [Suspect]
     Route: 065
  8. PROMETHAZINE [Suspect]
     Route: 065
  9. TRANDOLAPRIL AND VERAPAMIL HYDROCHLORIDE [Suspect]
     Route: 065
  10. LAMOTRIGINE [Suspect]
     Route: 065

REACTIONS (2)
  - COMPLETED SUICIDE [None]
  - OVERDOSE [None]
